FAERS Safety Report 13880977 (Version 2)
Quarter: 2017Q3

REPORT INFORMATION
  Report Type: Report from Study
  Country: AR (occurrence: AR)
  Receive Date: 20170818
  Receipt Date: 20170927
  Transmission Date: 20171127
  Serious: Yes (Hospitalization, Other)
  Sender: FDA-Public Use
  Company Number: AR-ELI_LILLY_AND_COMPANY-AR201708005241

PATIENT
  Age: 74 Year
  Sex: Male

DRUGS (1)
  1. CETUXIMAB. [Suspect]
     Active Substance: CETUXIMAB
     Indication: HEAD AND NECK CANCER
     Dosage: UNK, UNKNOWN
     Route: 042
     Dates: start: 20160422

REACTIONS (3)
  - Weight decreased [Unknown]
  - Pneumonia [Recovered/Resolved]
  - Apathy [Unknown]

NARRATIVE: CASE EVENT DATE: 201705
